FAERS Safety Report 13070029 (Version 1)
Quarter: 2016Q4

REPORT INFORMATION
  Report Type: Spontaneous
  Country: GB (occurrence: GB)
  Receive Date: 20161228
  Receipt Date: 20161228
  Transmission Date: 20170207
  Serious: Yes (Hospitalization)
  Sender: FDA-Public Use
  Company Number: GB-TEVA-724334ACC

PATIENT
  Age: 6 Decade
  Sex: Male

DRUGS (6)
  1. ASPIRIN. [Concomitant]
     Active Substance: ASPIRIN
  2. ATORVASTATIN [Suspect]
     Active Substance: ATORVASTATIN
     Indication: ARTERIAL STENOSIS
     Dosage: 80 MILLIGRAM DAILY; AT NIGHT
     Route: 048
     Dates: start: 201611
  3. LEVETIRACETAM. [Suspect]
     Active Substance: LEVETIRACETAM
     Indication: POST STROKE SEIZURE
     Dosage: 1000 MILLIGRAM DAILY;
     Route: 048
     Dates: start: 201611
  4. RAMIPRIL. [Concomitant]
     Active Substance: RAMIPRIL
  5. MIRTAZAPINE. [Suspect]
     Active Substance: MIRTAZAPINE
     Indication: POST STROKE DEPRESSION
     Dosage: 30 MILLIGRAM DAILY; AT NIGHT.
     Route: 048
     Dates: start: 201611
  6. CLOPIDOGREL [Concomitant]
     Active Substance: CLOPIDOGREL BISULFATE

REACTIONS (4)
  - Fatigue [Unknown]
  - Nausea [Unknown]
  - Liver function test abnormal [Not Recovered/Not Resolved]
  - Malaise [Unknown]

NARRATIVE: CASE EVENT DATE: 20161209
